FAERS Safety Report 24685515 (Version 1)
Quarter: 2024Q4

REPORT INFORMATION
  Report Type: Spontaneous
  Country: US (occurrence: US)
  Receive Date: 20241202
  Receipt Date: 20241202
  Transmission Date: 20250115
  Serious: Yes (Other)
  Sender: SANOFI AVENTIS
  Company Number: US-SA-2024SA352449

PATIENT
  Age: 66 Year
  Sex: Female

DRUGS (26)
  1. DUPIXENT [Suspect]
     Active Substance: DUPILUMAB
     Indication: Asthma
     Dosage: 300 MG, QOW
     Route: 058
  2. ALBUTEROL [Concomitant]
     Active Substance: ALBUTEROL
  3. UNSPECIFIED INGREDIENT [Concomitant]
     Active Substance: UNSPECIFIED INGREDIENT
  4. BACLOFEN [Concomitant]
     Active Substance: BACLOFEN
  5. BENZONATATE [Concomitant]
     Active Substance: BENZONATATE
  6. BIOTIN [Concomitant]
     Active Substance: BIOTIN
  7. CALCIUM [Concomitant]
     Active Substance: CALCIUM
  8. MINERALS\VITAMINS [Concomitant]
     Active Substance: MINERALS\VITAMINS
  9. CRANBERRY [Concomitant]
     Active Substance: CRANBERRY
  10. DOXYCYCLINE [Concomitant]
     Active Substance: DOXYCYCLINE
  11. EVENING PRIMROS [Concomitant]
  12. EZETIMIBE [Concomitant]
     Active Substance: EZETIMIBE
  13. FENOFIBRIC ACID [Concomitant]
     Active Substance: FENOFIBRIC ACID
  14. FLUTICASONE [Concomitant]
     Active Substance: FLUTICASONE
  15. HYDROCHLOROTHIAZIDE [Concomitant]
     Active Substance: HYDROCHLOROTHIAZIDE
  16. LEVOTHYROXINE [Concomitant]
     Active Substance: LEVOTHYROXINE
  17. LOSARTAN POTASSIUM [Concomitant]
     Active Substance: LOSARTAN POTASSIUM
  18. LYSINE [Concomitant]
     Active Substance: LYSINE
  19. MAGNESIUM [Concomitant]
     Active Substance: MAGNESIUM
  20. METHYLPREDNISOLONE [Concomitant]
     Active Substance: METHYLPREDNISOLONE
  21. MONTELUKAST [Concomitant]
     Active Substance: MONTELUKAST
  22. OMEGA 3 [Concomitant]
     Active Substance: CAPSAICIN
  23. POTASSIUM CHLORIDE [Concomitant]
     Active Substance: POTASSIUM CHLORIDE
  24. PROBIOTICS NOS [Concomitant]
     Active Substance: PROBIOTICS NOS
  25. CHOLECALCIFEROL [Concomitant]
     Active Substance: CHOLECALCIFEROL
  26. VOLTAREN [Concomitant]
     Active Substance: DICLOFENAC SODIUM

REACTIONS (8)
  - Cardiac flutter [Not Recovered/Not Resolved]
  - Sleep apnoea syndrome [Not Recovered/Not Resolved]
  - Cough [Not Recovered/Not Resolved]
  - Chest discomfort [Not Recovered/Not Resolved]
  - Dyspnoea [Not Recovered/Not Resolved]
  - Sleep disorder [Not Recovered/Not Resolved]
  - Arthralgia [Not Recovered/Not Resolved]
  - Asthma [Not Recovered/Not Resolved]
